FAERS Safety Report 6144655-2 (Version None)
Quarter: 2009Q2

REPORT INFORMATION
  Report Type: 
  Country: None (occurrence: None)
  Receive Date: 20090406
  Receipt Date: 20090331
  Transmission Date: 20091009
  Serious: Yes (Other)
  Sender: FDA-Public Use
  Company Number: A0776199A

PATIENT
  Age: 49 Year
  Sex: Female

DRUGS (3)
  1. VALTREX [Suspect]
     Indication: GENITAL HERPES
     Dosage: 500MG PER DAY
     Route: 048
     Dates: start: 20090101, end: 20090317
  2. ZETIA [Concomitant]
  3. SYNTHROID [Concomitant]

REACTIONS (3)
  - MUSCLE ATROPHY [None]
  - MUSCLE TWITCHING [None]
  - TREMOR [None]
